FAERS Safety Report 5258643-1 (Version None)
Quarter: 2007Q1

REPORT INFORMATION
  Report Type: 
  Country: None (occurrence: None)
  Receive Date: 20070308
  Receipt Date: 20070228
  Transmission Date: 20070707
  Serious: Yes (Life-Threatening, Hospitalization)
  Sender: FDA-Public Use
  Company Number: DE-ROCHE-484625

PATIENT
  Age: 59 Year
  Sex: Male

DRUGS (2)
  1. ZENAPAX [Suspect]
     Indication: LIVER TRANSPLANT
     Route: 065
     Dates: start: 20070206
  2. FK506 [Suspect]
     Indication: LIVER TRANSPLANT
     Route: 048
     Dates: start: 20070206

REACTIONS (1)
  - RENAL FAILURE ACUTE [None]
